FAERS Safety Report 17122232 (Version 2)
Quarter: 2019Q4

REPORT INFORMATION
  Report Type: Spontaneous
  Country: JP (occurrence: JP)
  Receive Date: 20191206
  Receipt Date: 20191213
  Transmission Date: 20200122
  Serious: Yes (Death, Hospitalization)
  Sender: FDA-Public Use
  Company Number: JP-INCYTE CORPORATION-2019IN012319

PATIENT

DRUGS (1)
  1. JAKAVI [Suspect]
     Active Substance: RUXOLITINIB
     Indication: MYELOFIBROSIS
     Dosage: 10 MG, QD
     Route: 065

REACTIONS (8)
  - Pneumonia aspiration [Fatal]
  - Decreased appetite [Fatal]
  - Gastric perforation [Fatal]
  - Gastrointestinal candidiasis [Fatal]
  - Abdominal pain upper [Fatal]
  - Gastric ulcer [Fatal]
  - Weight decreased [Fatal]
  - Duodenal ulcer [Fatal]
